APPROVED DRUG PRODUCT: PANTOPRAZOLE SODIUM IN 0.9% SODIUM CHLORIDE
Active Ingredient: PANTOPRAZOLE SODIUM
Strength: EQ 40MG BASE/100ML (EQ 0.4MG BASE/ML)
Dosage Form/Route: SOLUTION;INTRAVENOUS
Application: N217512 | Product #001
Applicant: BAXTER HEALTHCARE CORP
Approved: Feb 14, 2024 | RLD: Yes | RS: Yes | Type: RX